FAERS Safety Report 20224823 (Version 1)
Quarter: 2021Q4

REPORT INFORMATION
  Report Type: Spontaneous
  Country: US (occurrence: US)
  Receive Date: 20211223
  Receipt Date: 20211223
  Transmission Date: 20220303
  Serious: No
  Sender: FDA-Public Use
  Company Number: US-SA-SAC20211221000652

PATIENT
  Age: 49 Year
  Sex: Female

DRUGS (11)
  1. DUPIXENT [Suspect]
     Active Substance: DUPILUMAB
     Indication: Illness
     Dosage: 300 MG, QOW
     Route: 058
  2. URSODIOL [Concomitant]
     Active Substance: URSODIOL
  3. NEBIVOLOL [Concomitant]
     Active Substance: NEBIVOLOL
  4. RESTASIS [Concomitant]
     Active Substance: CYCLOSPORINE
  5. ALBUTEROL SULFATE [Concomitant]
     Active Substance: ALBUTEROL SULFATE
  6. LEVOTHYROXINE SODIUM [Concomitant]
     Active Substance: LEVOTHYROXINE SODIUM
  7. AZITHROMYCIN [Concomitant]
     Active Substance: AZITHROMYCIN
  8. PHENTERMINE [Concomitant]
     Active Substance: PHENTERMINE
  9. FLUOCINOLONE ACETONIDE [Concomitant]
     Active Substance: FLUOCINOLONE ACETONIDE
  10. PIMECROLIMUS [Concomitant]
     Active Substance: PIMECROLIMUS
  11. VIORELE [Concomitant]
     Active Substance: DESOGESTREL\ETHINYL ESTRADIOL

REACTIONS (1)
  - Injection site pain [Unknown]
